FAERS Safety Report 8825618 (Version 3)
Quarter: 2012Q4

REPORT INFORMATION
  Report Type: Report from Study
  Country: JP (occurrence: JP)
  Receive Date: 20121004
  Receipt Date: 20121113
  Transmission Date: 20130627
  Serious: Yes (Other)
  Sender: FDA-Public Use
  Company Number: JP-CELGENEUS-087-21660-12100466

PATIENT
  Age: 42 Year
  Sex: Female
  Weight: 52 kg

DRUGS (7)
  1. ABRAXANE [Suspect]
     Indication: BREAST CANCER METASTATIC
     Dosage: 224 Milligram
     Route: 041
     Dates: start: 20110818
  2. ABRAXANE [Suspect]
     Dosage: 187 Milligram
     Route: 041
     Dates: start: 20120507
  3. ABRAXANE [Suspect]
     Dosage: 149 Milligram
     Route: 041
     Dates: start: 20120730, end: 20120910
  4. ZOMETA [Concomitant]
     Indication: BREAST CANCER METASTATIC
     Route: 065
  5. SCUTUM A [Concomitant]
     Indication: SPRAIN
     Route: 065
  6. SCUTUM A [Concomitant]
     Indication: LOW BACK PAIN
  7. SCUTUM A [Concomitant]
     Indication: BRUISE

REACTIONS (1)
  - Macular oedema [Recovered/Resolved]
